FAERS Safety Report 9890113 (Version 1)
Quarter: 2014Q1

REPORT INFORMATION
  Report Type: Spontaneous
  Country: US (occurrence: US)
  Receive Date: 20140212
  Receipt Date: 20140212
  Transmission Date: 20141002
  Serious: No
  Sender: FDA-Public Use
  Company Number: US-BIOGENIDEC-2014BI011256

PATIENT
  Age: 54 Year
  Sex: Female

DRUGS (12)
  1. TECFIDERA [Suspect]
     Indication: MULTIPLE SCLEROSIS
     Route: 048
     Dates: start: 201305, end: 201401
  2. TECFIDERA [Suspect]
     Indication: MULTIPLE SCLEROSIS
     Route: 048
     Dates: start: 201401, end: 201401
  3. TECFIDERA [Suspect]
     Indication: MULTIPLE SCLEROSIS
     Route: 048
     Dates: start: 201401
  4. AMLODOPINE [Concomitant]
  5. BISOPROLOL-HYDROCHLORO [Concomitant]
  6. IBUPROFEN [Concomitant]
  7. NEXIUM [Concomitant]
  8. OYSTER SHELL CALCIUM [Concomitant]
  9. RANITIDINE [Concomitant]
  10. VALTREX [Concomitant]
  11. VITAMIN B-12 [Concomitant]
  12. ZOFRAN [Concomitant]

REACTIONS (2)
  - Headache [Unknown]
  - Underdose [Recovered/Resolved]
